FAERS Safety Report 9049575 (Version 2)
Quarter: 2013Q1

REPORT INFORMATION
  Report Type: Spontaneous
  Country: US (occurrence: US)
  Receive Date: 20130205
  Receipt Date: 20130321
  Transmission Date: 20140127
  Serious: No
  Sender: FDA-Public Use
  Company Number: US-PFIZER INC-2013048126

PATIENT
  Age: 51 Year
  Sex: Female
  Weight: 63.04 kg

DRUGS (4)
  1. LYRICA [Suspect]
     Indication: FIBROMYALGIA
     Dosage: 75 MG, UNK
     Route: 048
     Dates: start: 201201
  2. LYRICA [Suspect]
     Indication: NEUROPATHY PERIPHERAL
  3. LYRICA [Suspect]
     Indication: MYALGIA
  4. TRAZODONE [Concomitant]
     Dosage: UNK

REACTIONS (1)
  - Drug ineffective [Unknown]
